FAERS Safety Report 6713841-2 (Version None)
Quarter: 2010Q2

REPORT INFORMATION
  Report Type: 
  Country: None (occurrence: None)
  Receive Date: 20100504
  Receipt Date: 20100427
  Transmission Date: 20101027
  Serious: Yes (Other)
  Sender: FDA-Public Use
  Company Number: 2010SP024017

PATIENT
  Sex: Female

DRUGS (1)
  1. IMPLANON [Suspect]
     Indication: CONTRACEPTION
     Dosage: 1 DF;
     Dates: start: 20070101

REACTIONS (7)
  - ABORTION SPONTANEOUS [None]
  - AMENORRHOEA [None]
  - DRUG EXPOSURE DURING PREGNANCY [None]
  - IMPLANT SITE HAEMATOMA [None]
  - PREGNANCY WITH IMPLANT CONTRACEPTIVE [None]
  - TRAUMATIC HAEMATOMA [None]
  - VAGINAL HAEMORRHAGE [None]
